FAERS Safety Report 11459936 (Version 4)
Quarter: 2015Q3

REPORT INFORMATION
  Report Type: Spontaneous
  Country: US (occurrence: US)
  Receive Date: 20150831
  Receipt Date: 20150903
  Transmission Date: 20151125
  Serious: No
  Sender: FDA-Public Use
  Company Number: US-ELI_LILLY_AND_COMPANY-US200909006634

PATIENT
  Age: 39 Year
  Sex: Female

DRUGS (3)
  1. CYMBALTA [Suspect]
     Active Substance: DULOXETINE HYDROCHLORIDE
     Dosage: 60 MG, DAILY (1/D)
     Dates: start: 2008, end: 200908
  2. CYMBALTA [Suspect]
     Active Substance: DULOXETINE HYDROCHLORIDE
     Dosage: 30 MG, DAILY (1/D)
     Dates: start: 200908
  3. CYMBALTA [Suspect]
     Active Substance: DULOXETINE HYDROCHLORIDE
     Indication: POSTPARTUM DEPRESSION
     Dosage: 20 MG, DAILY (1/D)
     Dates: start: 2009, end: 20090913

REACTIONS (9)
  - Headache [Unknown]
  - Visual impairment [Unknown]
  - Diarrhoea [Recovering/Resolving]
  - Feeling abnormal [Not Recovered/Not Resolved]
  - Drug abuse [Unknown]
  - Vertigo [Recovering/Resolving]
  - Vomiting [Recovered/Resolved]
  - Nightmare [Unknown]
  - Dizziness [Recovering/Resolving]

NARRATIVE: CASE EVENT DATE: 200908
